FAERS Safety Report 5254282-7 (Version None)
Quarter: 2007Q1

REPORT INFORMATION
  Report Type: 
  Country: None (occurrence: None)
  Receive Date: 20070302
  Receipt Date: 20070221
  Transmission Date: 20070707
  Serious: Yes (Death, Hospitalization)
  Sender: FDA-Public Use
  Company Number: FR-GLAXOSMITHKLINE-B0459783A

PATIENT
  Age: 30 Year
  Sex: Male

DRUGS (12)
  1. AUGMENTIN '125' [Suspect]
     Indication: POSTOPERATIVE CARE
     Dosage: 2G PER DAY
     Route: 042
     Dates: start: 20061120, end: 20061122
  2. TOPALGIC (FRANCE) [Suspect]
     Indication: POSTOPERATIVE CARE
     Dosage: 300MG PER DAY
     Route: 042
     Dates: start: 20061120
  3. DEPAKENE [Suspect]
     Dosage: 1.5G PER DAY
     Route: 048
  4. LOXAPAC [Suspect]
     Dosage: 450MG PER DAY
     Route: 048
  5. CLOZAPINE [Suspect]
     Dosage: 300MG PER DAY
     Route: 048
     Dates: start: 20060901
  6. RISPERDAL [Suspect]
     Dosage: 1UNIT EVERY TWO WEEKS
     Route: 030
     Dates: start: 20050801
  7. NORSET [Concomitant]
     Route: 065
  8. PARKINANE [Concomitant]
     Route: 065
  9. SCOPODERM [Concomitant]
     Route: 065
  10. SEGLOR [Concomitant]
     Route: 065
  11. PERFALGAN [Concomitant]
     Indication: POSTOPERATIVE CARE
     Route: 065
  12. AMIKLIN [Concomitant]
     Dosage: 1G PER DAY
     Route: 065
     Dates: start: 20061122

REACTIONS (8)
  - BLOOD FIBRINOGEN INCREASED [None]
  - CYANOSIS [None]
  - HYPERHIDROSIS [None]
  - HYPERTHERMIA [None]
  - NEUTROPHIL COUNT INCREASED [None]
  - OBSTRUCTIVE AIRWAYS DISORDER [None]
  - SUDDEN DEATH [None]
  - TACHYCARDIA [None]
